FAERS Safety Report 8021470-6 (Version None)
Quarter: 2011Q4

REPORT INFORMATION
  Report Type: 
  Country: None (occurrence: None)
  Receive Date: 20111230
  Receipt Date: 20111230
  Transmission Date: 20120403
  Serious: Yes (Death)
  Sender: FDA-Public Use
  Company Number: None

PATIENT
  Age: 33 Year
  Sex: Female
  Weight: 65 kg

DRUGS (1)
  1. OXALIPLATIN [Suspect]
     Indication: NEOPLASM MALIGNANT
     Dosage: 336 MG ONCE 033-INTRAPERITONEAL
     Route: 033
     Dates: start: 20111213

REACTIONS (3)
  - HYPONATRAEMIA [None]
  - BRAIN OEDEMA [None]
  - BRAIN HERNIATION [None]
